FAERS Safety Report 11516484 (Version 3)
Quarter: 2015Q4

REPORT INFORMATION
  Report Type: Spontaneous
  Country: US (occurrence: US)
  Receive Date: 20150917
  Receipt Date: 20151027
  Transmission Date: 20160304
  Serious: No
  Sender: FDA-Public Use
  Company Number: US-PFIZER INC-2015309879

PATIENT
  Sex: Male

DRUGS (3)
  1. GEODON [Suspect]
     Active Substance: ZIPRASIDONE HYDROCHLORIDE\ZIPRASIDONE MESYLATE
     Dosage: 160 MG, 1X/DAY, (AT BEDTIME)
     Dates: start: 201501
  2. DOXEPIN [Concomitant]
     Active Substance: DOXEPIN
     Dosage: UNK UNK, 1X/DAY, (AT BEDTIME)
     Dates: start: 201503
  3. GEODON [Suspect]
     Active Substance: ZIPRASIDONE HYDROCHLORIDE\ZIPRASIDONE MESYLATE
     Indication: SCHIZOPHRENIA
     Dosage: 80 MG, 2X/DAY

REACTIONS (3)
  - Somnolence [Unknown]
  - Drug effect decreased [Recovered/Resolved]
  - Paranoia [Recovered/Resolved]

NARRATIVE: CASE EVENT DATE: 201501
